FAERS Safety Report 25903503 (Version 1)
Quarter: 2025Q4

REPORT INFORMATION
  Report Type: Spontaneous
  Country: EU (occurrence: EU)
  Receive Date: 20251009
  Receipt Date: 20251009
  Transmission Date: 20260118
  Serious: Yes (Other)
  Sender: UCB
  Company Number: EU-UCBSA-2025063352

PATIENT
  Sex: Female

DRUGS (1)
  1. BRIVARACETAM [Suspect]
     Active Substance: BRIVARACETAM
     Indication: Epilepsy
     Dosage: 50 MILLIGRAM

REACTIONS (5)
  - Cerebrovascular accident [Unknown]
  - Epilepsy [Unknown]
  - Anxiety [Unknown]
  - Therapy interrupted [Unknown]
  - Product availability issue [Unknown]
